FAERS Safety Report 6685823-0 (Version None)
Quarter: 2010Q2

REPORT INFORMATION
  Report Type: 
  Country: None (occurrence: None)
  Receive Date: 20100419
  Receipt Date: 20100409
  Transmission Date: 20101027
  Serious: Yes (Other)
  Sender: FDA-Public Use
  Company Number: FR-JNJFOC-20100402950

PATIENT
  Age: 88 Year
  Sex: Female

DRUGS (9)
  1. REMINYL [Suspect]
     Indication: DEMENTIA
     Route: 048
  2. LASIX [Concomitant]
     Route: 065
  3. DIFFU K [Concomitant]
     Route: 065
  4. LYRICA [Concomitant]
     Route: 065
  5. MEMANTINE HCL [Concomitant]
     Route: 065
  6. AROMASIN [Concomitant]
     Indication: BREAST CANCER
     Route: 065
  7. ACETAMINOPHEN [Concomitant]
     Route: 065
  8. TRAMADOL HCL [Concomitant]
     Route: 065
  9. CALCI-D3 [Concomitant]
     Route: 065

REACTIONS (1)
  - ELECTROCARDIOGRAM PR PROLONGATION [None]
